FAERS Safety Report 9548290 (Version 1)
Quarter: 2013Q3

REPORT INFORMATION
  Report Type: Spontaneous
  Country: US (occurrence: None)
  Receive Date: 20130923
  Receipt Date: 20130923
  Transmission Date: 20140515
  Serious: Yes (Other)
  Sender: FDA-Public Use
  Company Number: None

PATIENT
  Age: 71 Year
  Sex: Male

DRUGS (1)
  1. OMEPRAZOLE [Suspect]
     Indication: GASTROOESOPHAGEAL REFLUX DISEASE
     Dates: start: 20130725, end: 20130902

REACTIONS (5)
  - Diarrhoea [None]
  - Flatulence [None]
  - Abdominal discomfort [None]
  - Drug effect decreased [None]
  - Product quality issue [None]
